FAERS Safety Report 4724613-2 (Version None)
Quarter: 2005Q3

REPORT INFORMATION
  Report Type: 
  Country: None (occurrence: None)
  Receive Date: 20050726
  Receipt Date: 20050712
  Transmission Date: 20060218
  Serious: Yes (Other)
  Sender: FDA-Public Use
  Company Number: US-GLAXOSMITHKLINE-A0565878A

PATIENT
  Age: 58 Year
  Sex: Female

DRUGS (2)
  1. NICODERM CQ [Suspect]
     Route: 050
     Dates: start: 20050705, end: 20050711
  2. NICODERM CQ [Suspect]
     Route: 050
     Dates: start: 20050711

REACTIONS (4)
  - BLOOD BILIRUBIN INCREASED [None]
  - CHROMATURIA [None]
  - FATIGUE [None]
  - HEART RATE INCREASED [None]
